FAERS Safety Report 4513596-6 (Version None)
Quarter: 2004Q4

REPORT INFORMATION
  Report Type: 
  Country: None (occurrence: None)
  Receive Date: 20041130
  Receipt Date: 20040810
  Transmission Date: 20050328
  Serious: No
  Sender: FDA-Public Use
  Company Number: US-GLAXOSMITHKLINE-A0521639A

PATIENT
  Age: 68 Year
  Sex: Female

DRUGS (13)
  1. WELLBUTRIN XL [Suspect]
     Indication: DEPRESSION
     Dosage: 150MG PER DAY
     Route: 048
     Dates: start: 20040512
  2. PAXIL [Concomitant]
  3. GLUCOSAMINE [Concomitant]
  4. TYLENOL (CAPLET) [Concomitant]
  5. MULTI-VITAMIN [Concomitant]
  6. ALUMINUM HYDROXIDE AND MAGNESIUM TRISILICATE [Concomitant]
  7. GAVISCON [Concomitant]
  8. FOLIC ACID [Concomitant]
  9. VISINE EYE DROPS [Concomitant]
  10. RANITIDINE [Concomitant]
  11. DITROPAN [Concomitant]
  12. LISINOPRIL [Concomitant]
  13. ATENOLOL [Concomitant]

REACTIONS (8)
  - ANXIETY [None]
  - BLOOD PRESSURE INCREASED [None]
  - DRY MOUTH [None]
  - DYSPNOEA [None]
  - MYALGIA [None]
  - ORAL PAIN [None]
  - SWOLLEN TONGUE [None]
  - VISION BLURRED [None]
